FAERS Safety Report 16760814 (Version 1)
Quarter: 2019Q4

REPORT INFORMATION
  Report Type: Spontaneous
  Country: US (occurrence: US)
  Receive Date: 20190830
  Receipt Date: 20190830
  Transmission Date: 20200122
  Serious: Yes (Hospitalization)
  Sender: FDA-Public Use
  Company Number: None

PATIENT
  Age: 58 Year
  Sex: Male
  Weight: 112.5 kg

DRUGS (13)
  1. ACIPHEX [Concomitant]
     Active Substance: RABEPRAZOLE SODIUM
  2. HYDROCHLOROTHIAZIDE. [Concomitant]
     Active Substance: HYDROCHLOROTHIAZIDE
  3. CALCIUM [Concomitant]
     Active Substance: CALCIUM
  4. CRESTOR [Concomitant]
     Active Substance: ROSUVASTATIN CALCIUM
  5. LOMOTIL [Concomitant]
     Active Substance: ATROPINE SULFATE\DIPHENOXYLATE HYDROCHLORIDE
  6. MULTI VITAMIN [Concomitant]
     Active Substance: VITAMINS
  7. NOVOLOG [Concomitant]
     Active Substance: INSULIN ASPART
  8. TOUJEO [Concomitant]
     Active Substance: INSULIN GLARGINE
  9. DOXEPIN [Concomitant]
     Active Substance: DOXEPIN
  10. OZEMPIC [Suspect]
     Active Substance: SEMAGLUTIDE
     Indication: DIABETES MELLITUS
     Dosage: ?          QUANTITY:2 PENS;OTHER FREQUENCY:ONCE WEEKLY;?
     Route: 058
     Dates: start: 20190501, end: 20190822
  11. IRBESARTAN. [Concomitant]
     Active Substance: IRBESARTAN
  12. NASONEX [Concomitant]
     Active Substance: MOMETASONE FUROATE
  13. FISH OIL [Concomitant]
     Active Substance: FISH OIL

REACTIONS (3)
  - Dehydration [None]
  - Diarrhoea [None]
  - Acute kidney injury [None]

NARRATIVE: CASE EVENT DATE: 20190826
